FAERS Safety Report 23932562 (Version 1)
Quarter: 2024Q2

REPORT INFORMATION
  Report Type: Spontaneous
  Country: US (occurrence: None)
  Receive Date: 20240531
  Receipt Date: 20240531
  Transmission Date: 20240715
  Serious: Yes (Other)
  Sender: FDA-Public Use
  Company Number: None

PATIENT
  Age: 57 Year
  Sex: Female
  Weight: 64.8 kg

DRUGS (12)
  1. IBANDRONATE SODIUM [Suspect]
     Active Substance: IBANDRONATE SODIUM
     Indication: Osteoporosis
     Dosage: OTHER QUANTITY : 3 TABLET(S)?OTHER FREQUENCY : MONTHLY?
     Route: 048
     Dates: start: 20240521, end: 20240521
  2. LEVOTHYROXINE [Concomitant]
     Active Substance: LEVOTHYROXINE\LEVOTHYROXINE SODIUM
  3. METOPROLOL SUCCINATE [Concomitant]
     Active Substance: METOPROLOL SUCCINATE
  4. BUPROPION [Concomitant]
     Active Substance: BUPROPION
  5. DIETHYLPROPION HCI [Concomitant]
  6. VITAMIN B COMPLEX [Concomitant]
     Active Substance: CYANOCOBALAMIN\DEXPANTHENOL\NIACINAMIDE\PYRIDOXINE HYDROCHLORIDE\RIBOFLAVIN 5^-PHOSPHATE SODIUM\THIA
  7. BIOTIN [Concomitant]
     Active Substance: BIOTIN
  8. CALCIUM [Concomitant]
     Active Substance: CALCIUM
  9. VITAMINS [Concomitant]
     Active Substance: VITAMINS
  10. VITAMIN C [Concomitant]
     Active Substance: ASCORBIC ACID
  11. FLAXSEED [Concomitant]
     Active Substance: FLAX SEED
  12. VITAMIN D3 [Concomitant]
     Active Substance: CHOLECALCIFEROL

REACTIONS (12)
  - Back pain [None]
  - Arthralgia [None]
  - Myalgia [None]
  - Bone pain [None]
  - Mobility decreased [None]
  - Dyspnoea [None]
  - Muscle spasms [None]
  - Nasopharyngitis [None]
  - Pyrexia [None]
  - Lethargy [None]
  - Influenza like illness [None]
  - Pain in extremity [None]

NARRATIVE: CASE EVENT DATE: 20240522
